FAERS Safety Report 9174325 (Version 1)
Quarter: 2013Q1

REPORT INFORMATION
  Report Type: Spontaneous
  Country: JP (occurrence: JP)
  Receive Date: 20130320
  Receipt Date: 20130320
  Transmission Date: 20140127
  Serious: Yes (Other)
  Sender: FDA-Public Use
  Company Number: PHHY2013JP026776

PATIENT
  Age: 41 Year
  Sex: Male

DRUGS (1)
  1. TEGRETOL [Suspect]
     Dosage: UNK UKN, UNK
     Route: 048

REACTIONS (6)
  - Glaucoma [Not Recovered/Not Resolved]
  - Eye pain [Unknown]
  - Intraocular pressure increased [Unknown]
  - Chronic hepatitis [Unknown]
  - Liver function test abnormal [Unknown]
  - Malaise [Unknown]
